FAERS Safety Report 17185387 (Version 1)
Quarter: 2019Q4

REPORT INFORMATION
  Report Type: Spontaneous
  Country: US (occurrence: US)
  Receive Date: 20191220
  Receipt Date: 20191220
  Transmission Date: 20200122
  Serious: No
  Sender: FDA-Public Use
  Company Number: US-THERAPEUTICSMD-2019TMD04483

PATIENT
  Sex: Female

DRUGS (2)
  1. IMVEXXY [Suspect]
     Active Substance: ESTRADIOL
     Dosage: 10 ?G, 2X/WEEK AT NIGHT
     Route: 067
     Dates: start: 20190927, end: 2019
  2. IMVEXXY [Suspect]
     Active Substance: ESTRADIOL
     Dosage: 10 ?G, 1X/DAY, AT NIGHT
     Route: 067
     Dates: start: 2019, end: 2019

REACTIONS (5)
  - Off label use [Recovered/Resolved]
  - Skin texture abnormal [Recovering/Resolving]
  - Allergic reaction to excipient [Recovering/Resolving]
  - Vulvovaginal erythema [Recovering/Resolving]
  - Vulvovaginal pruritus [Recovering/Resolving]

NARRATIVE: CASE EVENT DATE: 2019
